FAERS Safety Report 4840663-X (Version None)
Quarter: 2005Q4

REPORT INFORMATION
  Report Type: 
  Country: None (occurrence: None)
  Receive Date: 20051130
  Receipt Date: 20051117
  Transmission Date: 20060501
  Serious: Yes (Other)
  Sender: FDA-Public Use
  Company Number: US-AMGEN-US158439

PATIENT

DRUGS (2)
  1. KEPIVANCE [Suspect]
     Indication: STOMATITIS
     Dates: start: 20051101, end: 20051101
  2. MELPHALAN [Concomitant]

REACTIONS (2)
  - FACE OEDEMA [None]
  - PALMAR-PLANTAR ERYTHRODYSAESTHESIA SYNDROME [None]
